FAERS Safety Report 17584049 (Version 1)
Quarter: 2020Q1

REPORT INFORMATION
  Report Type: Spontaneous
  Country: CA (occurrence: CA)
  Receive Date: 20200326
  Receipt Date: 20200326
  Transmission Date: 20200409
  Serious: Yes (Disabling)
  Sender: FDA-Public Use
  Company Number: CA-TEVA-2020-CA-1213755

PATIENT
  Age: 73 Year
  Sex: Female
  Weight: 56 kg

DRUGS (9)
  1. ALTACE [Concomitant]
     Active Substance: RAMIPRIL
  2. NORTRIPTYLINE [Suspect]
     Active Substance: NORTRIPTYLINE
     Indication: DIABETIC NEUROPATHY
  3. CALCIUM [Concomitant]
     Active Substance: CALCIUM
  4. INSULIN [Concomitant]
     Active Substance: INSULIN NOS
  5. SYNTHROID [Concomitant]
     Active Substance: LEVOTHYROXINE SODIUM
  6. ROSUVASTATIN. [Concomitant]
     Active Substance: ROSUVASTATIN
  7. NORTRIPTYLINE [Suspect]
     Active Substance: NORTRIPTYLINE
     Indication: NEURALGIA
     Dosage: 25 MILLIGRAM DAILY;
     Route: 048
  8. LYRICA [Concomitant]
     Active Substance: PREGABALIN
  9. D-TABS [Concomitant]
     Active Substance: CHOLECALCIFEROL

REACTIONS (1)
  - Hypoglycaemia [Recovered/Resolved]
